FAERS Safety Report 14204272 (Version 1)
Quarter: 2017Q4

REPORT INFORMATION
  Report Type: Spontaneous
  Country: CA (occurrence: CA)
  Receive Date: 20171120
  Receipt Date: 20171120
  Transmission Date: 20180321
  Serious: Yes (Other)
  Sender: FDA-Public Use
  Company Number: CA-ORION CORPORATION ORION PHARMA-TREX2017-3681

PATIENT
  Age: 51 Year
  Sex: Female

DRUGS (12)
  1. HYDROXYCHLOROQUINE [Suspect]
     Active Substance: HYDROXYCHLOROQUINE
     Route: 065
  2. METHOTREXATE (TRADE NAME UNKNOWN) [Suspect]
     Active Substance: METHOTREXATE
     Indication: RHEUMATOID ARTHRITIS
     Route: 065
  3. NAPROXEN. [Concomitant]
     Active Substance: NAPROXEN
     Route: 065
  4. ORENCIA [Suspect]
     Active Substance: ABATACEPT
     Route: 065
  5. ACTEMRA [Suspect]
     Active Substance: TOCILIZUMAB
     Route: 065
  6. ARAVA [Suspect]
     Active Substance: LEFLUNOMIDE
     Route: 065
  7. KETOROLAC [Concomitant]
     Active Substance: KETOROLAC\KETOROLAC TROMETHAMINE
     Route: 065
  8. XELJANZ [Suspect]
     Active Substance: TOFACITINIB CITRATE
     Indication: RHEUMATOID ARTHRITIS
     Route: 048
  9. FOLIC ACID. [Concomitant]
     Active Substance: FOLIC ACID
     Route: 065
  10. PREDNISONE. [Concomitant]
     Active Substance: PREDNISONE
     Route: 065
  11. ENBREL [Suspect]
     Active Substance: ETANERCEPT
     Route: 065
  12. ADVIL [Concomitant]
     Active Substance: IBUPROFEN
     Route: 065

REACTIONS (10)
  - Neutropenia [Unknown]
  - Platelet count decreased [Unknown]
  - Skin papilloma [Unknown]
  - Sinusitis [Unknown]
  - Thrombocytopenia [Unknown]
  - Product use issue [Unknown]
  - Condition aggravated [Unknown]
  - Overdose [Unknown]
  - Drug ineffective [Unknown]
  - Sleep disorder [Unknown]
